FAERS Safety Report 15811278 (Version 4)
Quarter: 2019Q2

REPORT INFORMATION
  Report Type: Report from Study
  Country: US (occurrence: US)
  Receive Date: 20190111
  Receipt Date: 20190610
  Transmission Date: 20190711
  Serious: No
  Sender: FDA-Public Use
  Company Number: PHEH2019US001129

PATIENT
  Sex: Female

DRUGS (1)
  1. COSENTYX [Suspect]
     Active Substance: SECUKINUMAB
     Indication: GUTTATE PSORIASIS
     Dosage: 300 MG, QMO
     Route: 058
     Dates: start: 201811

REACTIONS (7)
  - Guttate psoriasis [Unknown]
  - Product use in unapproved indication [Unknown]
  - Nasopharyngitis [Unknown]
  - Skin lesion [Unknown]
  - Injection site bruising [Unknown]
  - Condition aggravated [Unknown]
  - Drug ineffective for unapproved indication [Unknown]
